FAERS Safety Report 8007912-0 (Version None)
Quarter: 2011Q4

REPORT INFORMATION
  Report Type: 
  Country: None (occurrence: None)
  Receive Date: 20111221
  Receipt Date: 20111208
  Transmission Date: 20120403
  Serious: Yes (Other)
  Sender: FDA-Public Use
  Company Number: LMI-2011-01080

PATIENT
  Sex: 0

DRUGS (1)
  1. ABLAVAR [Suspect]
     Indication: PRODUCT USED FOR UNKNOWN INDICATION

REACTIONS (2)
  - POST PROCEDURAL COMPLICATION [None]
  - BUDD-CHIARI SYNDROME [None]
